FAERS Safety Report 23123853 (Version 3)
Quarter: 2024Q2

REPORT INFORMATION
  Report Type: Spontaneous
  Country: GB (occurrence: GB)
  Receive Date: 20231030
  Receipt Date: 20240408
  Transmission Date: 20240715
  Serious: Yes (Hospitalization, Other)
  Sender: FDA-Public Use
  Company Number: GB-MYLANLABS-2023M1082086

PATIENT
  Sex: Female

DRUGS (2)
  1. CLOZARIL [Suspect]
     Active Substance: CLOZAPINE
     Indication: Schizophrenia
     Dosage: UNK
     Route: 048
     Dates: start: 20220207
  2. CLOZARIL [Suspect]
     Active Substance: CLOZAPINE
     Dosage: 150MG MORNING AND 200MG NIGHT, BID (TWICE DAILY)
     Route: 048

REACTIONS (2)
  - Pancreatitis [Unknown]
  - Hospitalisation [Recovered/Resolved]
